FAERS Safety Report 8931647 (Version 1)
Quarter: 2012Q4

REPORT INFORMATION
  Report Type: 
  Country: BR (occurrence: BR)
  Receive Date: 20121128
  Receipt Date: 20121128
  Transmission Date: 20130627
  Serious: Yes (Hospitalization, Other)
  Sender: FDA-Public Use
  Company Number: BR-PFIZER INC-2012295806

PATIENT
  Age: 60 Year
  Sex: Male
  Weight: 70 kg

DRUGS (6)
  1. NORVASC [Suspect]
     Dosage: 5 mg, 2x/day
     Route: 048
     Dates: start: 20081123
  2. ZOLOFT [Suspect]
     Dosage: 50 mg, 1x/day
     Route: 048
     Dates: start: 20081123
  3. FRONTAL [Suspect]
     Dosage: 2 mg, 1x/day
     Route: 048
     Dates: start: 20081123
  4. TRAMAL [Suspect]
     Dosage: 50 mg, 2x/day
     Route: 048
     Dates: start: 20081123
  5. SELOZOK [Concomitant]
     Dosage: 50 mg, 1x/day
     Dates: start: 20021123
  6. IMOSEC [Concomitant]
     Dosage: 4 mg, 3x/day

REACTIONS (4)
  - Road traffic accident [Recovering/Resolving]
  - Multiple fractures [Recovering/Resolving]
  - Traumatic lung injury [Recovering/Resolving]
  - Gastrointestinal disorder [Recovering/Resolving]
